FAERS Safety Report 5901182-2 (Version None)
Quarter: 2008Q3

REPORT INFORMATION
  Report Type: 
  Country: None (occurrence: None)
  Receive Date: 20080929
  Receipt Date: 20080717
  Transmission Date: 20090109
  Serious: No
  Sender: FDA-Public Use
  Company Number: US-BRISTOL-MYERS SQUIBB COMPANY-14097729

PATIENT
  Age: 49 Year
  Sex: Female

DRUGS (5)
  1. ORENCIA [Suspect]
     Indication: RHEUMATOID ARTHRITIS
     Dosage: 1 INFUSION
     Route: 042
     Dates: start: 20080131
  2. CELEBREX [Concomitant]
     Dosage: 1 DOSAGE FORM = 200 (UNITS NOT SPECIFIED).
  3. ARAVA [Concomitant]
     Dosage: 1 DOSAGE FORM = 20 (UNITS NOT SPECIFIED).
  4. MEDROL [Concomitant]
     Dosage: 1 DOSAGE FORM = 6 (UNITS NOT MENTIONED)
  5. SULFASALAZINE [Concomitant]
     Dosage: 1 DOSAGE FORM = 500 UNITS NOT SPECIFIED

REACTIONS (7)
  - EYE SWELLING [None]
  - HYPERSENSITIVITY [None]
  - LIGAMENT LAXITY [None]
  - LIVER FUNCTION TEST ABNORMAL [None]
  - NAUSEA [None]
  - SWELLING FACE [None]
  - SWOLLEN TONGUE [None]
